FAERS Safety Report 15473407 (Version 1)
Quarter: 2018Q4

REPORT INFORMATION
  Report Type: Spontaneous
  Country: CA (occurrence: CA)
  Receive Date: 20181008
  Receipt Date: 20181008
  Transmission Date: 20190205
  Serious: Yes (Hospitalization)
  Sender: FDA-Public Use
  Company Number: CA-PFIZER INC-2018399531

PATIENT
  Age: 48 Year
  Sex: Female

DRUGS (5)
  1. HYDROMORPHONE HYDROCHLORIDE. [Suspect]
     Active Substance: HYDROMORPHONE HYDROCHLORIDE
     Dosage: 2 MG, 1X/DAY (1 EVERY 1 DAY)
     Route: 048
  2. PREDNISONE. [Concomitant]
     Active Substance: PREDNISONE
     Dosage: 30 MG, UNK
     Route: 065
  3. METHYLPREDNISOLONE SODIUM SUCCINATE. [Suspect]
     Active Substance: METHYLPREDNISOLONE SODIUM SUCCINATE
     Dosage: 20 MG, 3X/DAY (1 EVERY 8 HOURS)
     Route: 042
  4. ASACOL [Suspect]
     Active Substance: MESALAMINE
     Dosage: UNK
     Route: 065
  5. PIPERACILLIN/TAZOBACTAM [Suspect]
     Active Substance: PIPERACILLIN SODIUM\TAZOBACTAM SODIUM
     Dosage: 3.375 G, 4X/DAY (1 EVERY 6 HOURS)
     Route: 042

REACTIONS (5)
  - Discomfort [Unknown]
  - Abdominal pain [Unknown]
  - Drug hypersensitivity [Unknown]
  - Colitis ulcerative [Unknown]
  - Rectal haemorrhage [Unknown]
